FAERS Safety Report 4428232-7 (Version None)
Quarter: 2004Q3

REPORT INFORMATION
  Report Type: 
  Country: None (occurrence: None)
  Receive Date: 20040726
  Receipt Date: 20040318
  Transmission Date: 20050211
  Serious: No
  Sender: FDA-Public Use
  Company Number: USA040362438

PATIENT
  Age: 57 Year
  Sex: Female
  Weight: 48 kg

DRUGS (7)
  1. FORTEO [Suspect]
     Indication: OSTEOPOROSIS
     Dates: start: 20040309
  2. SYNTHROID [Concomitant]
  3. ZOCOR [Concomitant]
  4. WELLBUTRIN [Concomitant]
  5. SINEQUAN [Concomitant]
  6. VITAMIN CAP [Concomitant]
  7. TUMS (CALCIUM CARBONATE) [Concomitant]

REACTIONS (2)
  - INJECTION SITE HAEMORRHAGE [None]
  - INJECTION SITE PAIN [None]
